FAERS Safety Report 5760655-6 (Version None)
Quarter: 2008Q2

REPORT INFORMATION
  Report Type: 
  Country: None (occurrence: None)
  Receive Date: 20080602
  Receipt Date: 20080519
  Transmission Date: 20081010
  Serious: Yes (Hospitalization)
  Sender: FDA-Public Use
  Company Number: TRP_05723_2008

PATIENT
  Sex: Female
  Weight: 70.8065 kg

DRUGS (2)
  1. RIBAVIRIN [Suspect]
     Indication: HEPATITIS C
     Dosage: 1000 MG ; 400 MG AQM AND 600 MG QPM, ORAL
     Route: 048
     Dates: start: 20070626, end: 20071024
  2. PEGASYS [Suspect]
     Indication: HEPATITIS C
     Dosage: 180 ?G 1X/WEEK SUBCUTANEOUS
     Route: 058
     Dates: start: 20070626, end: 20071024

REACTIONS (4)
  - COLITIS ISCHAEMIC [None]
  - FATIGUE [None]
  - NAUSEA [None]
  - VOMITING [None]
